FAERS Safety Report 8406284-7 (Version None)
Quarter: 2012Q2

REPORT INFORMATION
  Report Type: 
  Country: None (occurrence: None)
  Receive Date: 20120604
  Receipt Date: 20120530
  Transmission Date: 20120825
  Serious: Yes (Hospitalization)
  Sender: FDA-Public Use
  Company Number: PHHY2011IN097268

PATIENT
  Sex: Male

DRUGS (2)
  1. BLOOD TRANSFUSION, AUXILIARY PRODUCTS [Concomitant]
  2. GLEEVEC [Suspect]
     Indication: CHRONIC MYELOID LEUKAEMIA
     Dosage: 400 MG

REACTIONS (3)
  - FISTULA [None]
  - ASTHENIA [None]
  - WEIGHT DECREASED [None]
